FAERS Safety Report 11511230 (Version 1)
Quarter: 2015Q3

REPORT INFORMATION
  Report Type: Spontaneous
  Country: US (occurrence: US)
  Receive Date: 20150915
  Receipt Date: 20150915
  Transmission Date: 20151125
  Serious: Yes (Other)
  Sender: FDA-Public Use
  Company Number: US-BAYER-2015-417571

PATIENT
  Age: 40 Year
  Sex: Female

DRUGS (20)
  1. BAYER GENUINE ASPIRIN [Suspect]
     Active Substance: ASPIRIN
     Dosage: UNK
  2. ROXICODONE [Concomitant]
     Active Substance: OXYCODONE HYDROCHLORIDE
     Indication: PAIN
     Dosage: 1 DF, QD, AS NEEDED
     Route: 048
     Dates: start: 20150803
  3. ULTRAM [Concomitant]
     Active Substance: TRAMADOL HYDROCHLORIDE
     Indication: HEADACHE
     Dosage: 1 DF, PRN, MAX 3 PER WEEK
     Route: 048
     Dates: start: 20150727
  4. VITAMIN B12 [Concomitant]
     Active Substance: CYANOCOBALAMIN
     Dosage: 1 ML, Q1MON
     Dates: start: 20150227
  5. PAMELOR [Concomitant]
     Active Substance: NORTRIPTYLINE HYDROCHLORIDE
     Dosage: 3 DF, HS
     Route: 048
     Dates: start: 20150429
  6. ALBUTEROL SULFATE. [Concomitant]
     Active Substance: ALBUTEROL SULFATE
     Indication: WHEEZING
  7. XYLOCAINE [Concomitant]
     Active Substance: LIDOCAINE HYDROCHLORIDE
     Indication: PAIN
     Dosage: 5 ML, PRN, 3-6 TIMES PER DAY
     Route: 048
     Dates: start: 20150116
  8. NEURONTIN [Concomitant]
     Active Substance: GABAPENTIN
     Dosage: 1 DF, TID
     Route: 048
     Dates: start: 20150821
  9. ELAVIL [Concomitant]
     Active Substance: AMITRIPTYLINE HYDROCHLORIDE
     Dosage: 1 DF, HS
     Route: 048
     Dates: start: 20150806
  10. VITAMIN D2 [Concomitant]
     Active Substance: ERGOCALCIFEROL
     Dosage: 1 DF, OW
     Route: 048
     Dates: start: 20150302
  11. TOPAMAX [Concomitant]
     Active Substance: TOPIRAMATE
     Dosage: 1 DF, TID
     Route: 048
     Dates: start: 20130627
  12. ALBUTEROL SULFATE. [Concomitant]
     Active Substance: ALBUTEROL SULFATE
     Indication: DYSPNOEA
     Dosage: 2 DF, PRN, EVERY 4 HOURS
     Route: 045
     Dates: start: 20150123
  13. PROTONIX [Concomitant]
     Active Substance: PANTOPRAZOLE SODIUM
     Dosage: 1 DF, OM, BEFORE BREAKFAST
     Route: 048
     Dates: start: 20141031
  14. TORADOL [Concomitant]
     Active Substance: KETOROLAC TROMETHAMINE
     Indication: MIGRAINE
     Dosage: 2 ML, PRN, MAX 3 DOSES PER WEEK FOR DECEMBER
     Dates: start: 20150323
  15. ABILIFY [Concomitant]
     Active Substance: ARIPIPRAZOLE
     Dosage: 1 DF, QD
     Route: 048
     Dates: start: 20130220
  16. LYRICA [Concomitant]
     Active Substance: PREGABALIN
     Dosage: 1 DF, TID
     Route: 048
     Dates: start: 20150821
  17. ZANAFLEX [Concomitant]
     Active Substance: TIZANIDINE HYDROCHLORIDE
     Indication: MUSCLE SPASMS
     Dosage: 1 DF, TID
     Route: 048
     Dates: start: 20150818
  18. CYMBALTA [Concomitant]
     Active Substance: DULOXETINE HYDROCHLORIDE
     Dosage: 1 DF, BID
     Route: 048
     Dates: start: 20130722
  19. VISTARIL [Concomitant]
     Active Substance: HYDROXYZINE PAMOATE
     Indication: PRURITUS
     Dosage: 3 DF, TID
     Route: 048
     Dates: start: 20130409
  20. ZOFRON [Concomitant]
     Active Substance: ONDANSETRON
     Indication: NAUSEA
     Dosage: 1 DF, TID, AS NEEDED
     Route: 048
     Dates: start: 20150727

REACTIONS (2)
  - Drug hypersensitivity [None]
  - Coma [Recovered/Resolved]

NARRATIVE: CASE EVENT DATE: 1975
